FAERS Safety Report 4339804-2 (Version None)
Quarter: 2004Q2

REPORT INFORMATION
  Report Type: 
  Country: None (occurrence: None)
  Receive Date: 20040416
  Receipt Date: 20030918
  Transmission Date: 20050107
  Serious: No
  Sender: FDA-Public Use
  Company Number: US-BRISTOL-MYERS SQUIBB COMPANY-12393740

PATIENT
  Age: 58 Year
  Sex: Female
  Weight: 107 kg

DRUGS (12)
  1. CAPTOPRIL [Suspect]
     Indication: HYPERTENSION
     Route: 048
     Dates: end: 20030801
  2. PLAVIX [Suspect]
  3. COREG [Concomitant]
  4. LIPITOR [Concomitant]
  5. ISORDIL [Concomitant]
     Dates: start: 19970101
  6. HYDROCHLOROTHIAZIDE [Concomitant]
  7. ATARAX [Concomitant]
  8. ENTERIC ASPIRIN [Concomitant]
  9. ZOLOFT [Concomitant]
     Dates: start: 20000201
  10. CELEBREX [Concomitant]
  11. PROTONIX [Concomitant]
  12. NITROSTAT [Concomitant]
     Dates: start: 19960101

REACTIONS (2)
  - COUGH [None]
  - DERMATITIS ALLERGIC [None]
